FAERS Safety Report 7496154-3 (Version None)
Quarter: 2011Q2

REPORT INFORMATION
  Report Type: 
  Country: None (occurrence: None)
  Receive Date: 20110513
  Receipt Date: 20110504
  Transmission Date: 20111010
  Serious: Yes (Congenital Anomaly)
  Sender: FDA-Public Use
  Company Number: 911189

PATIENT

DRUGS (1)
  1. METHOTREXATE [Suspect]
     Dosage: TRANSPLACENTAL
     Route: 064

REACTIONS (5)
  - FALLOT'S TETRALOGY [None]
  - MATERNAL DRUGS AFFECTING FOETUS [None]
  - CONGENITAL PULMONARY VALVE ATRESIA [None]
  - CONGENITAL RENAL DISORDER [None]
  - HEART DISEASE CONGENITAL [None]
